FAERS Safety Report 13700125 (Version 1)
Quarter: 2017Q2

REPORT INFORMATION
  Report Type: Spontaneous
  Country: IT (occurrence: IT)
  Receive Date: 20170629
  Receipt Date: 20170629
  Transmission Date: 20170830
  Serious: Yes (Hospitalization)
  Sender: FDA-Public Use
  Company Number: IT-ROCHE-1954706

PATIENT
  Age: 77 Year
  Sex: Male

DRUGS (1)
  1. CEFTRIAXONE. [Suspect]
     Active Substance: CEFTRIAXONE
     Indication: THROMBOPHLEBITIS
     Route: 030

REACTIONS (2)
  - Anaphylactic reaction [Unknown]
  - Pulmonary embolism [Recovering/Resolving]
